FAERS Safety Report 15353505 (Version 4)
Quarter: 2018Q3

REPORT INFORMATION
  Report Type: Report from Study
  Country: None (occurrence: FR)
  Receive Date: 20180905
  Receipt Date: 20180917
  Transmission Date: 20181010
  Serious: Yes (Death)
  Sender: FDA-Public Use
  Company Number: FR-ABBVIE-18P-056-2475345-00

PATIENT
  Age: 42 Year
  Sex: Male

DRUGS (6)
  1. TROPATEPINE [Concomitant]
     Active Substance: TROPATEPINE
     Indication: DEPRESSION
     Route: 002
     Dates: start: 20170901
  2. PAROXETINE. [Concomitant]
     Active Substance: PAROXETINE
     Indication: DEPRESSION
     Route: 002
     Dates: start: 20170901
  3. LOXAPINE. [Concomitant]
     Active Substance: LOXAPINE
     Indication: DEPRESSION
     Route: 002
     Dates: start: 20170901
  4. GLECAPREVIR/PIBRENTASVIR [Suspect]
     Active Substance: GLECAPREVIR\PIBRENTASVIR
     Indication: HEPATITIS C
     Route: 048
     Dates: start: 20180620, end: 20180814
  5. BUPRENORPHINE. [Concomitant]
     Active Substance: BUPRENORPHINE
     Indication: PRODUCT USED FOR UNKNOWN INDICATION
     Route: 002
     Dates: start: 20090101
  6. SERESTA [Concomitant]
     Active Substance: OXAZEPAM
     Indication: DEPRESSION
     Route: 002
     Dates: start: 20170901

REACTIONS (1)
  - Completed suicide [Fatal]

NARRATIVE: CASE EVENT DATE: 20180814
